FAERS Safety Report 17334420 (Version 1)
Quarter: 2020Q1

REPORT INFORMATION
  Report Type: Spontaneous
  Country: US (occurrence: US)
  Receive Date: 20200128
  Receipt Date: 20200128
  Transmission Date: 20200409
  Serious: Yes (Death, Hospitalization, Congenital Anomaly, Other)
  Sender: FDA-Public Use
  Company Number: US-LUPIN PHARMACEUTICALS INC.-2020-00387

PATIENT
  Sex: Male
  Weight: 720.18 kg

DRUGS (6)
  1. MAGNESIUM SULFATE. [Suspect]
     Active Substance: MAGNESIUM SULFATE
     Indication: PROPHYLAXIS
     Dosage: UNK
     Route: 064
  2. AZITHROMYCIN ANHYDROUS. [Suspect]
     Active Substance: AZITHROMYCIN ANHYDROUS
     Indication: INFECTION PROPHYLAXIS
     Dosage: 500 MILLIGRAM (2 G Q6 X 48 HOURS)
     Route: 064
  3. BETAMETHASONE. [Suspect]
     Active Substance: BETAMETHASONE
     Indication: PROPHYLAXIS
     Dosage: UNK
     Route: 064
  4. AMPICILLIN [Suspect]
     Active Substance: AMPICILLIN
     Indication: INFECTION PROPHYLAXIS
     Dosage: 2 GRAM (2 G Q6 X 48 HOURS)
     Route: 064
  5. ERYTHROMYCIN. [Suspect]
     Active Substance: ERYTHROMYCIN
     Indication: INFECTION PROPHYLAXIS
     Dosage: UNK
     Route: 064
  6. AMPICILLIN [Suspect]
     Active Substance: AMPICILLIN
     Dosage: UNK
     Route: 064

REACTIONS (10)
  - Pneumonia escherichia [Fatal]
  - Premature baby [Unknown]
  - Respiratory distress [Unknown]
  - Pulmonary hypertension [Unknown]
  - Low birth weight baby [Unknown]
  - Escherichia sepsis [Fatal]
  - Atrial septal defect [Unknown]
  - Group B streptococcus neonatal sepsis [Fatal]
  - Patent ductus arteriosus [Unknown]
  - Foetal exposure during pregnancy [Unknown]
